FAERS Safety Report 24691184 (Version 1)
Quarter: 2024Q4

REPORT INFORMATION
  Report Type: Spontaneous
  Country: US (occurrence: None)
  Receive Date: 20241202
  Receipt Date: 20241202
  Transmission Date: 20250114
  Serious: Yes (Other)
  Sender: Public
  Company Number: None

PATIENT
  Age: 46 Year
  Sex: Female
  Weight: 55.57 kg

DRUGS (1)
  1. VENOFER [Suspect]
     Active Substance: IRON SUCROSE
     Indication: Iron deficiency anaemia
     Dosage: 400 MG WEEKLY INTRAVENOUS ?
     Route: 042
     Dates: start: 20241202, end: 20241202

REACTIONS (5)
  - Back pain [None]
  - Chest pain [None]
  - Loss of consciousness [None]
  - Adverse drug reaction [None]
  - Infusion related reaction [None]

NARRATIVE: CASE EVENT DATE: 20241202
